FAERS Safety Report 6377233-0 (Version None)
Quarter: 2009Q3

REPORT INFORMATION
  Report Type: 
  Country: None (occurrence: None)
  Receive Date: 20090925
  Receipt Date: 20090921
  Transmission Date: 20100115
  Serious: Yes (Other)
  Sender: FDA-Public Use
  Company Number: B0328603A

PATIENT
  Sex: Female

DRUGS (2)
  1. LAMIVUDINE [Suspect]
     Route: 048
     Dates: start: 20040303, end: 20040306
  2. ESOMEPRAZOLE [Concomitant]
     Indication: PEPTIC ULCER
     Dosage: 1TAB PER DAY
     Route: 048
     Dates: start: 20040303, end: 20040303

REACTIONS (4)
  - DIARRHOEA [None]
  - RASH [None]
  - RASH GENERALISED [None]
  - SWELLING FACE [None]
